FAERS Safety Report 20753038 (Version 1)
Quarter: 2022Q2

REPORT INFORMATION
  Report Type: Spontaneous
  Country: US (occurrence: None)
  Receive Date: 20220426
  Receipt Date: 20220426
  Transmission Date: 20220721
  Serious: No
  Sender: FDA-Public Use
  Company Number: US-ROCHE-3005250

PATIENT
  Sex: Female

DRUGS (8)
  1. ESBRIET [Suspect]
     Active Substance: PIRFENIDONE
     Indication: Pulmonary fibrosis
     Dosage: TAKE 1 TABLET 3 TIMES DAILY FOR 1 WEEK, TAKE 2 TABLETS 3 TIMES DAILY FOR 1 WEEK, TAKE 3 TABLETS BY M
     Route: 048
  2. HYDROCHLOROTHIAZIDE [Concomitant]
     Active Substance: HYDROCHLOROTHIAZIDE
  3. METOPROLOL [Concomitant]
     Active Substance: METOPROLOL
  4. SPIRIVA [Concomitant]
     Active Substance: TIOTROPIUM BROMIDE MONOHYDRATE
  5. SYNTHROID [Concomitant]
     Active Substance: LEVOTHYROXINE SODIUM
  6. VITAMIN C [Concomitant]
     Active Substance: ASCORBIC ACID
  7. VITAMIN D3 [Concomitant]
     Active Substance: CHOLECALCIFEROL
  8. ZOCOR [Concomitant]
     Active Substance: SIMVASTATIN

REACTIONS (3)
  - Nausea [Not Recovered/Not Resolved]
  - Tremor [Not Recovered/Not Resolved]
  - Feeling abnormal [Not Recovered/Not Resolved]
